FAERS Safety Report 4522678-4 (Version None)
Quarter: 2004Q4

REPORT INFORMATION
  Report Type: 
  Country: None (occurrence: None)
  Receive Date: 20041209
  Receipt Date: 20041202
  Transmission Date: 20050328
  Serious: Yes (Other)
  Sender: FDA-Public Use
  Company Number: JP-ABBOTT-04P-087-0282134-00

PATIENT
  Sex: Female

DRUGS (6)
  1. KLARICID [Suspect]
     Indication: HELICOBACTER INFECTION
     Route: 048
     Dates: start: 20040213, end: 20040214
  2. LANSOPRAZOLE [Suspect]
     Indication: HELICOBACTER INFECTION
     Route: 048
     Dates: start: 20040213, end: 20040214
  3. LANSOPRAZOLE [Suspect]
     Indication: GASTRIC ULCER
  4. AMOXICILLIN TRIHYDRATE [Concomitant]
     Indication: HELICOBACTER INFECTION
     Route: 048
     Dates: start: 20040213, end: 20040214
  5. SIMVASTATIN [Concomitant]
     Indication: HYPERCHOLESTEROLAEMIA
     Route: 048
     Dates: start: 19920302
  6. FAMOTIDINE [Concomitant]
     Indication: GASTRIC ULCER
     Route: 048
     Dates: start: 20040116

REACTIONS (3)
  - DRUG ERUPTION [None]
  - PRURITUS [None]
  - PYREXIA [None]
